FAERS Safety Report 18376908 (Version 1)
Quarter: 2020Q4

REPORT INFORMATION
  Report Type: Spontaneous
  Country: US (occurrence: US)
  Receive Date: 20201012
  Receipt Date: 20201012
  Transmission Date: 20210114
  Serious: No
  Sender: FDA-Public Use
  Company Number: None

PATIENT
  Age: 64 Year
  Sex: Female
  Weight: 65.25 kg

DRUGS (11)
  1. MYRBETRIQ [Suspect]
     Active Substance: MIRABEGRON
     Indication: HYPERTONIC BLADDER
     Dosage: ?          QUANTITY:7 TABLET(S);?
     Route: 048
     Dates: start: 20201009
  2. CLIMARA PRO PATCH [Concomitant]
  3. EXTRA STRENGTH HAIR SKIN AND NAILS VITAMINS BY NATURE^S BOUNTY [Concomitant]
  4. MAGNESIUM [Concomitant]
     Active Substance: MAGNESIUM
  5. VITAFUSION VITAMIN D3 GUMMY VITAMINS [Concomitant]
  6. OSTEO BI - FLEX [Concomitant]
  7. NATURES^ WAY ALIVE! WOMEN^S GUMMY MULTIVITAMIN [Concomitant]
  8. FULL B VITAMIN COMPLEX [Concomitant]
  9. NEURIVA [Concomitant]
  10. VITAMIN K [Concomitant]
     Active Substance: PHYTONADIONE
  11. OMEGA XL [Concomitant]
     Active Substance: DIETARY SUPPLEMENT

REACTIONS (1)
  - Rash [None]

NARRATIVE: CASE EVENT DATE: 20201009
